FAERS Safety Report 24919748 (Version 3)
Quarter: 2025Q1

REPORT INFORMATION
  Report Type: Spontaneous
  Country: CA (occurrence: CA)
  Receive Date: 20250204
  Receipt Date: 20250218
  Transmission Date: 20250409
  Serious: Yes (Other)
  Sender: BRISTOL-MYERS SQUIBB COMPANY
  Company Number: CA-BRISTOL-MYERS SQUIBB COMPANY-2025-015502

PATIENT
  Age: 73 Year
  Sex: Female
  Weight: 61 kg

DRUGS (2)
  1. ELIQUIS [Suspect]
     Active Substance: APIXABAN
     Indication: Thrombosis prophylaxis
  2. EZETIMIBE [Concomitant]
     Active Substance: EZETIMIBE
     Indication: Blood cholesterol abnormal

REACTIONS (9)
  - Breast cancer [Unknown]
  - Menopausal symptoms [Unknown]
  - Visual impairment [Unknown]
  - Alopecia [Unknown]
  - Tendon disorder [Unknown]
  - Anaemia [Unknown]
  - Hyperhidrosis [Unknown]
  - Headache [Unknown]
  - Insomnia [Unknown]
